FAERS Safety Report 7436319-X (Version None)
Quarter: 2011Q2

REPORT INFORMATION
  Report Type: 
  Country: None (occurrence: None)
  Receive Date: 20110426
  Receipt Date: 20110415
  Transmission Date: 20111010
  Serious: Yes (Death)
  Sender: FDA-Public Use
  Company Number: US-BIOGENIDEC-2011BI014266

PATIENT
  Age: 59 Year
  Sex: Female

DRUGS (2)
  1. TYSABRI [Suspect]
     Indication: MULTIPLE SCLEROSIS
     Route: 042
     Dates: start: 20070409, end: 20101020
  2. AVONEX [Concomitant]
     Indication: MULTIPLE SCLEROSIS
     Route: 030
     Dates: start: 20001220

REACTIONS (6)
  - TREATMENT NONCOMPLIANCE [None]
  - DISEASE PROGRESSION [None]
  - CONVULSION [None]
  - CORONARY ARTERY DISEASE [None]
  - MULTIPLE SCLEROSIS [None]
  - DEHYDRATION [None]
